FAERS Safety Report 26178377 (Version 1)
Quarter: 2025Q4

REPORT INFORMATION
  Report Type: Spontaneous
  Country: CN (occurrence: CN)
  Receive Date: 20251219
  Receipt Date: 20251219
  Transmission Date: 20260118
  Serious: Yes (Other)
  Sender: TERSERA THERAPEUTICS
  Company Number: CN-ASTRAZENECA-202512CHN006982CN

PATIENT

DRUGS (4)
  1. GOSERELIN [Suspect]
     Active Substance: GOSERELIN
     Indication: Neoplasm
     Dosage: 3.600 MILLIGRAM, QD
     Route: 058
     Dates: start: 20251022, end: 20251022
  2. ZOLADEX [Suspect]
     Active Substance: GOSERELIN ACETATE
     Indication: Neoplasm
     Dosage: UNK
     Route: 065
  3. CEFIXIME [Suspect]
     Active Substance: CEFIXIME
     Indication: Neoplasm
     Dosage: 500.000 MILLIGRAM, Q4W
     Route: 030
     Dates: start: 20251022, end: 20251022
  4. DALPICICLIB ISETHIONATE [Suspect]
     Active Substance: DALPICICLIB ISETHIONATE
     Indication: Neoplasm
     Dosage: 150.000 MILLIGRAM, QD
     Route: 048
     Dates: start: 20251022, end: 20251022

REACTIONS (1)
  - Myelosuppression [Unknown]

NARRATIVE: CASE EVENT DATE: 20251118
